FAERS Safety Report 5362968-9 (Version None)
Quarter: 2007Q2

REPORT INFORMATION
  Report Type: 
  Country: None (occurrence: None)
  Receive Date: 20070615
  Receipt Date: 20070606
  Transmission Date: 20071010
  Serious: Yes (Hospitalization)
  Sender: FDA-Public Use
  Company Number: CIP07001077

PATIENT
  Age: 43 Year
  Sex: Female

DRUGS (2)
  1. ACTONEL [Suspect]
     Indication: OSTEOPOROSIS
     Dosage: 35 MG ONCE WEEKLY, ORAL
     Route: 048
     Dates: start: 20070101, end: 20070101
  2. CALCIUM W/VITAMIN D /00188401/ (ERGOCALCIFEROL, CALCIUM) [Concomitant]

REACTIONS (2)
  - CEREBRAL ISCHAEMIA [None]
  - TRANSIENT ISCHAEMIC ATTACK [None]
